FAERS Safety Report 9248109 (Version 1)
Quarter: 2013Q2

REPORT INFORMATION
  Report Type: Spontaneous
  Country: US (occurrence: None)
  Receive Date: 20130419
  Receipt Date: 20130419
  Transmission Date: 20140414
  Serious: No
  Sender: FDA-Public Use
  Company Number: None

PATIENT
  Age: 57 Year
  Sex: Female
  Weight: 58.97 kg

DRUGS (1)
  1. PREPOPIK [Suspect]
     Indication: COLONOSCOPY
     Dosage: 1 PACKET IN 5OZ WATER, 2X 5 HRS APART PO
     Route: 048
     Dates: start: 20130414, end: 20130417

REACTIONS (2)
  - Drug effect decreased [None]
  - Product quality issue [None]
